FAERS Safety Report 21033000 (Version 1)
Quarter: 2022Q2

REPORT INFORMATION
  Report Type: Spontaneous
  Country: US (occurrence: None)
  Receive Date: 20220630
  Receipt Date: 20220630
  Transmission Date: 20220721
  Serious: Yes (Hospitalization)
  Sender: FDA-Public Use
  Company Number: None

PATIENT
  Age: 72 Year
  Sex: Male

DRUGS (1)
  1. BEBTELOVIMAB [Suspect]
     Active Substance: BEBTELOVIMAB
     Indication: COVID-19
     Dosage: FREQUENCY : ONCE;?
     Route: 042
     Dates: start: 20220610, end: 20220610

REACTIONS (5)
  - Pyrexia [None]
  - Tremor [None]
  - Chills [None]
  - Tachycardia [None]
  - Infusion related reaction [None]

NARRATIVE: CASE EVENT DATE: 20220610
